FAERS Safety Report 11626411 (Version 1)
Quarter: 2015Q4

REPORT INFORMATION
  Report Type: Spontaneous
  Country: US (occurrence: US)
  Receive Date: 20151013
  Receipt Date: 20151013
  Transmission Date: 20160304
  Serious: No
  Sender: FDA-Public Use
  Company Number: US-ROCHE-1599042

PATIENT
  Sex: Female

DRUGS (2)
  1. WARFARIN [Concomitant]
     Active Substance: WARFARIN
  2. KADCYLA [Suspect]
     Active Substance: ADO-TRASTUZUMAB EMTANSINE
     Indication: METASTATIC NEOPLASM
     Route: 065
     Dates: start: 201312

REACTIONS (5)
  - Respiratory tract irritation [Unknown]
  - Cough [Unknown]
  - Platelet count decreased [Unknown]
  - Fatigue [Unknown]
  - Epistaxis [Unknown]
